FAERS Safety Report 13569953 (Version 1)
Quarter: 2017Q2

REPORT INFORMATION
  Report Type: Spontaneous
  Country: US (occurrence: US)
  Receive Date: 20170522
  Receipt Date: 20170522
  Transmission Date: 20170830
  Serious: No
  Sender: FDA-Public Use
  Company Number: US-MAYNE PHARMA-2017MYN000378

PATIENT

DRUGS (2)
  1. WELLBUTRIN [Concomitant]
     Active Substance: BUPROPION HYDROCHLORIDE
     Indication: PRODUCT USED FOR UNKNOWN INDICATION
     Dosage: 25 MG, UNK
  2. LEENA [Suspect]
     Active Substance: ETHINYL ESTRADIOL\NORETHINDRONE
     Indication: CONTRACEPTION
     Dosage: 1 DF, QD
     Route: 048
     Dates: end: 201702

REACTIONS (12)
  - Menstrual disorder [Unknown]
  - Photosensitivity reaction [Unknown]
  - Dizziness [Recovering/Resolving]
  - Psoriasis [Unknown]
  - Nausea [Recovering/Resolving]
  - Epistaxis [Not Recovered/Not Resolved]
  - Dyspepsia [Recovering/Resolving]
  - Menorrhagia [Unknown]
  - Product substitution issue [Unknown]
  - Emotional disorder [Recovering/Resolving]
  - Headache [Recovering/Resolving]
  - Crying [Unknown]

NARRATIVE: CASE EVENT DATE: 201702
